FAERS Safety Report 18186795 (Version 4)
Quarter: 2020Q3

REPORT INFORMATION
  Report Type: Spontaneous
  Country: US (occurrence: US)
  Receive Date: 20200824
  Receipt Date: 20200902
  Transmission Date: 20201103
  Serious: Yes (Other)
  Sender: FDA-Public Use
  Company Number: US-PFIZER INC-2020324323

PATIENT
  Age: 50 Year
  Sex: Female
  Weight: 63.96 kg

DRUGS (5)
  1. LORBRENA [Suspect]
     Active Substance: LORLATINIB
     Dosage: 50 MG, ALTERNATE DAY
  2. LORBRENA [Suspect]
     Active Substance: LORLATINIB
     Indication: LUNG CANCER METASTATIC
     Dosage: 50 MG, 1X/DAY
     Dates: start: 2018
  3. SIMVASTATIN. [Suspect]
     Active Substance: SIMVASTATIN
     Indication: BLOOD CHOLESTEROL ABNORMAL
     Dosage: 10 MG, 1X/DAY (1 TABLET IN THE EVENING BY MOUTH, 10 MG)
     Route: 048
     Dates: start: 201904, end: 202005
  4. ELIQUIS [Concomitant]
     Active Substance: APIXABAN
     Indication: CEREBROVASCULAR ACCIDENT PROPHYLAXIS
     Dosage: 2.5 MG, 1X/DAY
     Route: 048
  5. ZYKADIA [Concomitant]
     Active Substance: CERITINIB
     Dosage: UNK

REACTIONS (11)
  - Cardiac murmur [Unknown]
  - Dyspnoea [Recovering/Resolving]
  - Angina pectoris [Unknown]
  - Intentional product use issue [Unknown]
  - Blood cholesterol increased [Unknown]
  - Heart rate decreased [Unknown]
  - Amnesia [Recovering/Resolving]
  - Visual impairment [Unknown]
  - Liver function test increased [Unknown]
  - Weight increased [Unknown]
  - Peripheral swelling [Recovering/Resolving]

NARRATIVE: CASE EVENT DATE: 2018
